FAERS Safety Report 9775047 (Version 1)
Quarter: 2013Q4

REPORT INFORMATION
  Report Type: Spontaneous
  Country: US (occurrence: US)
  Receive Date: 20131220
  Receipt Date: 20131220
  Transmission Date: 20140711
  Serious: No
  Sender: FDA-Public Use
  Company Number: US-GLAXOSMITHKLINE-A1043290A

PATIENT
  Age: 78 Year
  Sex: Male

DRUGS (2)
  1. AVODART [Suspect]
     Indication: MICTURITION DISORDER
     Dosage: .5MG PER DAY
     Route: 048
     Dates: start: 1998
  2. FLOMAX [Concomitant]
     Dosage: 1TAB AT NIGHT

REACTIONS (3)
  - Dysuria [Unknown]
  - Drug ineffective [Unknown]
  - Product quality issue [Unknown]
